FAERS Safety Report 8076376-3 (Version None)
Quarter: 2012Q1

REPORT INFORMATION
  Report Type: 
  Country: None (occurrence: None)
  Receive Date: 20120127
  Receipt Date: 20120127
  Transmission Date: 20120608
  Serious: Yes (Other)
  Sender: FDA-Public Use
  Company Number: None

PATIENT
  Age: 42 Year
  Sex: Female
  Weight: 95.254 kg

DRUGS (1)
  1. LISINOPRIL [Suspect]
     Indication: HYPERTENSION
     Dosage: 10MG
     Route: 048
     Dates: start: 20110322, end: 20120124

REACTIONS (17)
  - ABDOMINAL PAIN [None]
  - COUGH [None]
  - LUNG DISORDER [None]
  - LIP SWELLING [None]
  - UTERINE OPERATION [None]
  - INSOMNIA [None]
  - VOMITING [None]
  - STRESS [None]
  - MENORRHAGIA [None]
  - GASTROOESOPHAGEAL REFLUX DISEASE [None]
  - INFLAMMATION [None]
  - LUNG NEOPLASM [None]
  - ABDOMINAL PAIN UPPER [None]
  - IMPAIRED WORK ABILITY [None]
  - QUALITY OF LIFE DECREASED [None]
  - DYSPNOEA [None]
  - ECONOMIC PROBLEM [None]
